FAERS Safety Report 5160376-7 (Version None)
Quarter: 2006Q4

REPORT INFORMATION
  Report Type: 
  Country: None (occurrence: None)
  Receive Date: 20061121
  Receipt Date: 20061113
  Transmission Date: 20070319
  Serious: Yes (Death, Hospitalization, Other)
  Sender: FDA-Public Use
  Company Number: 163-21880-06050658

PATIENT
  Age: 47 Year
  Sex: Female

DRUGS (2)
  1. REVLIMID [Suspect]
     Indication: HODGKIN'S DISEASE
     Dosage: 10 MG, 1 IN 1 D, ORAL
     Route: 048
     Dates: start: 20060322
  2. REVLIMID [Suspect]
     Indication: HODGKIN'S DISEASE
     Dosage: 10 MG, 1 IN 1 D, ORAL
     Route: 048
     Dates: start: 20060410

REACTIONS (17)
  - ACUTE MYELOID LEUKAEMIA [None]
  - ACUTE RESPIRATORY DISTRESS SYNDROME [None]
  - ANAEMIA [None]
  - ARTHRALGIA [None]
  - BONE PAIN [None]
  - CAUSTIC INJURY [None]
  - DISEASE PROGRESSION [None]
  - ERYTHEMA [None]
  - GINGIVAL BLEEDING [None]
  - HYPOTENSION [None]
  - INSOMNIA [None]
  - OSTEOPENIA [None]
  - PERFORMANCE STATUS DECREASED [None]
  - PNEUMONIA [None]
  - PYREXIA [None]
  - SCAR [None]
  - SEPSIS [None]
